FAERS Safety Report 6201728-3 (Version None)
Quarter: 2009Q2

REPORT INFORMATION
  Report Type: 
  Country: None (occurrence: None)
  Receive Date: 20090526
  Receipt Date: 20090519
  Transmission Date: 20091009
  Serious: Yes (Hospitalization, Other)
  Sender: FDA-Public Use
  Company Number: US-BAYER-200921286NA

PATIENT
  Age: 22 Year
  Sex: Female

DRUGS (1)
  1. YAZ [Suspect]
     Indication: INFERTILITY FEMALE
     Route: 048
     Dates: start: 20090504, end: 20090509

REACTIONS (2)
  - CHEST PAIN [None]
  - HEADACHE [None]
